FAERS Safety Report 24317688 (Version 1)
Quarter: 2024Q3

REPORT INFORMATION
  Report Type: Spontaneous
  Country: US (occurrence: US)
  Receive Date: 20240913
  Receipt Date: 20240913
  Transmission Date: 20241016
  Serious: No
  Sender: PFIZER
  Company Number: US-PFIZER INC-202400254730

PATIENT
  Age: 81 Year
  Sex: Female

DRUGS (3)
  1. PROTONIX [Suspect]
     Active Substance: PANTOPRAZOLE SODIUM
     Dosage: 1 DF, 1X/DAY (ONE TABLET IN THE MORNING)
     Dates: start: 202403
  2. PROTONIX [Suspect]
     Active Substance: PANTOPRAZOLE SODIUM
     Dosage: 2 DF, DAILY (TWO TABLETS A DAY)
  3. PROTONIX [Suspect]
     Active Substance: PANTOPRAZOLE SODIUM
     Dosage: 1 DF, DAILY

REACTIONS (2)
  - Therapeutic response unexpected [Unknown]
  - Flatulence [Unknown]

NARRATIVE: CASE EVENT DATE: 20240801
